FAERS Safety Report 21492820 (Version 1)
Quarter: 2022Q4

REPORT INFORMATION
  Report Type: Spontaneous
  Country: DE (occurrence: DE)
  Receive Date: 20221021
  Receipt Date: 20221021
  Transmission Date: 20230113
  Serious: Yes (Hospitalization)
  Sender: FDA-Public Use
  Company Number: DE-NOVARTISPH-NVSC2022DE233010

PATIENT
  Age: 31 Year
  Sex: Female
  Weight: 73 kg

DRUGS (5)
  1. PREDNISOLONE [Suspect]
     Active Substance: PREDNISOLONE
     Indication: Product used for unknown indication
     Dosage: 15 MG, QD (1-0-0-0)
     Route: 065
  2. COLCHICUM [Suspect]
     Active Substance: COLCHICINE
     Indication: Product used for unknown indication
     Dosage: 0.5 MG, BID (1-0-1-0)
     Route: 065
  3. QUETIAPINE [Concomitant]
     Active Substance: QUETIAPINE
     Indication: Product used for unknown indication
     Dosage: 100 MG, QD (0-0-0-1)
     Route: 065
  4. FLUOXETINE [Concomitant]
     Active Substance: FLUOXETINE HYDROCHLORIDE
     Indication: Product used for unknown indication
     Dosage: 20 MG, QD (2.5-0-0-0)
     Route: 065
  5. PANTOPRAZOLE [Concomitant]
     Active Substance: PANTOPRAZOLE
     Indication: Product used for unknown indication
     Dosage: 20 MG, BID (2-0-2-0)
     Route: 065

REACTIONS (9)
  - Melaena [Unknown]
  - Haematemesis [Unknown]
  - Abdominal pain [Unknown]
  - Melaena [Unknown]
  - Abdominal distension [Unknown]
  - Musculoskeletal pain [Unknown]
  - Gastritis [Unknown]
  - General physical health deterioration [Unknown]
  - Abdominal pain upper [Unknown]
